FAERS Safety Report 13650632 (Version 1)
Quarter: 2017Q2

REPORT INFORMATION
  Report Type: Spontaneous
  Country: US (occurrence: US)
  Receive Date: 20170614
  Receipt Date: 20170614
  Transmission Date: 20170830
  Serious: No
  Sender: FDA-Public Use
  Company Number: US-ENDO PHARMACEUTICALS INC-2017-000968

PATIENT
  Age: 11 Year
  Sex: Male
  Weight: 50.34 kg

DRUGS (1)
  1. SUPPRELIN LA [Suspect]
     Active Substance: HISTRELIN ACETATE
     Indication: GENDER DYSPHORIA
     Dosage: UNK, UNKNOWN
     Route: 065
     Dates: start: 20150429

REACTIONS (4)
  - Off label use [Unknown]
  - Device breakage [Not Recovered/Not Resolved]
  - Incorrect drug administration duration [Recovered/Resolved]
  - Procedural complication [Not Recovered/Not Resolved]

NARRATIVE: CASE EVENT DATE: 20150429
